FAERS Safety Report 13857353 (Version 2)
Quarter: 2017Q4

REPORT INFORMATION
  Report Type: Report from Study
  Country: US (occurrence: US)
  Receive Date: 20170810
  Receipt Date: 20171005
  Transmission Date: 20180320
  Serious: Yes (Hospitalization)
  Sender: FDA-Public Use
  Company Number: US-VIFOR (INTERNATIONAL) INC.-VIT-2017-08495

PATIENT
  Sex: Male
  Weight: 79.45 kg

DRUGS (22)
  1. TACROLIMUS. [Concomitant]
     Active Substance: TACROLIMUS
  2. ARANESP [Concomitant]
     Active Substance: DARBEPOETIN ALFA
     Route: 058
  3. COREG [Concomitant]
     Active Substance: CARVEDILOL
     Dosage: WITH MEALS
     Route: 048
  4. HYGROTON [Concomitant]
     Active Substance: CHLORTHALIDONE
     Route: 048
  5. NORVASC [Concomitant]
     Active Substance: AMLODIPINE BESYLATE
     Route: 048
  6. VELTASSA [Suspect]
     Active Substance: PATIROMER
     Indication: HYPERKALAEMIA
     Route: 048
     Dates: start: 201607
  7. ZOVIRAX [Concomitant]
     Active Substance: ACYCLOVIR
     Route: 048
  8. PROGRAF [Concomitant]
     Active Substance: TACROLIMUS\TACROLIMUS ANHYDROUS
     Route: 048
  9. COLACE [Concomitant]
     Active Substance: DOCUSATE SODIUM
     Indication: CONSTIPATION
     Route: 048
  10. ZYLOPRIM [Concomitant]
     Active Substance: ALLOPURINOL
     Route: 048
  11. GLUCOSE [Concomitant]
     Active Substance: DEXTROSE
     Indication: BLOOD GLUCOSE DECREASED
     Route: 048
  12. PROTONIX [Concomitant]
     Active Substance: PANTOPRAZOLE SODIUM
     Route: 048
  13. DELTASONE [Concomitant]
     Active Substance: PREDNISONE
     Route: 048
  14. DEMADEX [Concomitant]
     Active Substance: TORSEMIDE
  15. RANITIDINE. [Concomitant]
     Active Substance: RANITIDINE
  16. PRAVACHOL [Concomitant]
     Active Substance: PRAVASTATIN SODIUM
     Route: 048
  17. OCEAN SALINE NASAL SPRAY [Concomitant]
     Active Substance: SODIUM CHLORIDE
     Indication: NASAL CONGESTION
  18. SODIUM BICARBONATE. [Concomitant]
     Active Substance: SODIUM BICARBONATE
     Route: 048
  19. NEBUPENT [Concomitant]
     Active Substance: PENTAMIDINE ISETHIONATE
  20. CLARITIN [Concomitant]
     Active Substance: LORATADINE
     Route: 048
  21. TYLENOL [Concomitant]
     Active Substance: ACETAMINOPHEN
  22. DIFLUCAN [Concomitant]
     Active Substance: FLUCONAZOLE

REACTIONS (2)
  - Hospitalisation [Unknown]
  - Drug dose omission [Unknown]

NARRATIVE: CASE EVENT DATE: 2017
